FAERS Safety Report 7294224-6 (Version None)
Quarter: 2011Q1

REPORT INFORMATION
  Report Type: 
  Country: None (occurrence: None)
  Receive Date: 20110215
  Receipt Date: 20110202
  Transmission Date: 20110831
  Serious: Yes (Other)
  Sender: FDA-Public Use
  Company Number: US-MYLANLABS-2011S1002403

PATIENT
  Age: 2 Decade
  Sex: Male

DRUGS (4)
  1. MYCOPHENOLATE MOFETIL [Suspect]
     Indication: IMMUNOSUPPRESSANT DRUG THERAPY
     Route: 065
  2. PREDNISOLONE [Suspect]
     Indication: IMMUNOSUPPRESSANT DRUG THERAPY
     Route: 065
  3. DILTIAZEM [Concomitant]
     Route: 065
  4. CYCLOPHOSPHAMIDE [Suspect]
     Indication: IMMUNOSUPPRESSANT DRUG THERAPY
     Dosage: DOSAGE WHICH GAVE DESIRED SERUM DRUG LEVEL: 8.08MG/KG/DAY
     Route: 065

REACTIONS (1)
  - BLADDER TRANSITIONAL CELL CARCINOMA [None]
